FAERS Safety Report 23223936 (Version 2)
Quarter: 2024Q1

REPORT INFORMATION
  Report Type: Spontaneous
  Country: GB (occurrence: GB)
  Receive Date: 20231124
  Receipt Date: 20240108
  Transmission Date: 20240409
  Serious: Yes (Death, Life-Threatening)
  Sender: FDA-Public Use
  Company Number: None

PATIENT
  Age: 57 Year
  Sex: Male

DRUGS (2)
  1. IMBRUVICA [Suspect]
     Active Substance: IBRUTINIB
     Indication: Product used for unknown indication
     Dosage: DRUG START PERIOD: 19 DAYS
     Route: 048
     Dates: start: 20231016
  2. ALLOPURINOL [Concomitant]
     Active Substance: ALLOPURINOL
     Indication: Tumour lysis syndrome
     Dates: start: 20231012

REACTIONS (14)
  - Cardiac death [Fatal]
  - Atrial fibrillation [Fatal]
  - Oropharyngeal pain [Fatal]
  - Ventricular fibrillation [Fatal]
  - Dyspnoea [Fatal]
  - Electrocardiogram ST segment depression [Fatal]
  - Ischaemia [Fatal]
  - Malaise [Fatal]
  - Left ventricular dysfunction [Fatal]
  - Circulatory collapse [Fatal]
  - Headache [Fatal]
  - Cardiac arrest [Fatal]
  - Nervous system disorder [Fatal]
  - Respiratory failure [Fatal]

NARRATIVE: CASE EVENT DATE: 20231104
